FAERS Safety Report 11265284 (Version 2)
Quarter: 2015Q3

REPORT INFORMATION
  Report Type: Report from Study
  Country: US (occurrence: US)
  Receive Date: 20150713
  Receipt Date: 20150728
  Transmission Date: 20151125
  Serious: Yes (Hospitalization)
  Sender: FDA-Public Use
  Company Number: US-BIOGENIDEC-2015BI059093

PATIENT
  Sex: Female

DRUGS (1)
  1. TYSABRI [Suspect]
     Active Substance: NATALIZUMAB
     Indication: MULTIPLE SCLEROSIS
     Route: 042
     Dates: start: 20140620

REACTIONS (5)
  - Multiple sclerosis relapse [Unknown]
  - Asthenia [Unknown]
  - Abasia [Unknown]
  - Faecal incontinence [Unknown]
  - Urinary incontinence [Unknown]
